FAERS Safety Report 14079661 (Version 2)
Quarter: 2017Q4

REPORT INFORMATION
  Report Type: Spontaneous
  Country: US (occurrence: US)
  Receive Date: 20171012
  Receipt Date: 20171031
  Transmission Date: 20180321
  Serious: No
  Sender: FDA-Public Use
  Company Number: US-UNITED THERAPEUTICS-UNT-2017-014479

PATIENT
  Age: 4 Year
  Sex: Female
  Weight: 19.5 kg

DRUGS (5)
  1. REMODULIN [Suspect]
     Active Substance: TREPROSTINIL
     Dosage: 0.106 ?G/KG, CONTINUING
     Route: 058
  2. TRACLEER [Suspect]
     Active Substance: BOSENTAN
     Dosage: 62.5 MG, TID
     Route: 065
  3. REMODULIN [Suspect]
     Active Substance: TREPROSTINIL
     Indication: PULMONARY ARTERIAL HYPERTENSION
     Dosage: 0.091 ?G/KG, CONTINUING
     Route: 058
     Dates: start: 20161118
  4. TRACLEER [Suspect]
     Active Substance: BOSENTAN
     Indication: PULMONARY ARTERIAL HYPERTENSION
     Dosage: 31.25 MG, TID
     Route: 065
     Dates: start: 201611
  5. ADCIRCA [Concomitant]
     Active Substance: TADALAFIL
     Indication: PULMONARY ARTERIAL HYPERTENSION
     Dosage: 20 MG, QD
     Route: 065
     Dates: start: 201611

REACTIONS (11)
  - Fatigue [Unknown]
  - Chest pain [Unknown]
  - Dyspnoea exertional [Not Recovered/Not Resolved]
  - Headache [Recovered/Resolved]
  - Yellow skin [Recovered/Resolved]
  - Pallor [Recovered/Resolved]
  - Infusion site dryness [Unknown]
  - Vomiting [Recovered/Resolved]
  - Nausea [Recovered/Resolved]
  - Infusion site induration [Unknown]
  - Weight increased [Unknown]

NARRATIVE: CASE EVENT DATE: 2017
